FAERS Safety Report 11507720 (Version 1)
Quarter: 2015Q3

REPORT INFORMATION
  Report Type: Spontaneous
  Country: US (occurrence: None)
  Receive Date: 20150914
  Receipt Date: 20150914
  Transmission Date: 20151125
  Serious: Yes (Other)
  Sender: FDA-Public Use
  Company Number: None

PATIENT
  Age: 34 Year
  Sex: Male
  Weight: 70.76 kg

DRUGS (3)
  1. TYLENOL [Concomitant]
     Active Substance: ACETAMINOPHEN
  2. METFORMIN [Concomitant]
     Active Substance: METFORMIN HYDROCHLORIDE
  3. PAROXETINE [Suspect]
     Active Substance: PAROXETINE\PAROXETINE HYDROCHLORIDE
     Indication: DEPRESSION
     Dosage: 2 PILLS DAILY  ONCE DAILY TAKEN BY MOUTH
     Route: 048

REACTIONS (7)
  - Frustration [None]
  - Paraesthesia [None]
  - Nightmare [None]
  - Insomnia [None]
  - Aggression [None]
  - Self injurious behaviour [None]
  - Unevaluable event [None]

NARRATIVE: CASE EVENT DATE: 20150616
